FAERS Safety Report 7383404-7 (Version None)
Quarter: 2011Q1

REPORT INFORMATION
  Report Type: 
  Country: None (occurrence: None)
  Receive Date: 20110330
  Receipt Date: 20110318
  Transmission Date: 20110831
  Serious: Yes (Other)
  Sender: FDA-Public Use
  Company Number: JP-JNJFOC-20110308431

PATIENT
  Age: 80 Year
  Sex: Male
  Weight: 40 kg

DRUGS (11)
  1. DIOVAN [Concomitant]
     Indication: HYPERTENSION
     Route: 048
  2. TAMSULOSIN HCL [Concomitant]
     Indication: BENIGN PROSTATIC HYPERPLASIA
     Dosage: 1 DF, 1 IN 1 DAY
     Route: 048
  3. NICERGOLINE [Concomitant]
     Indication: PRODUCT USED FOR UNKNOWN INDICATION
     Dosage: 3 DF, 3 IN 1 DAY
     Route: 048
  4. TOPHARMIN [Concomitant]
     Indication: PRODUCT USED FOR UNKNOWN INDICATION
     Dosage: 1 DF, 1 IN 1DAY
     Route: 048
  5. ARICEPT [Concomitant]
     Indication: DEMENTIA
     Route: 048
  6. TRANSAMIN [Concomitant]
     Indication: HAEMATURIA
     Route: 048
  7. RISPERIDONE [Concomitant]
     Indication: DEPRESSION
     Route: 048
  8. CRAVIT [Suspect]
     Indication: URINARY TRACT INFECTION
     Route: 048
  9. ADONA [Concomitant]
     Indication: HAEMATURIA
     Dosage: 3 DF, 3 IN 1 DAY
     Route: 048
  10. MAGLAX [Concomitant]
     Indication: CONSTIPATION
     Dosage: 3 DF, 3 IN 1 DAY
     Route: 048
  11. NEUROTROPIN [Concomitant]
     Indication: PRODUCT USED FOR UNKNOWN INDICATION
     Dosage: 4 DF, 2 IN 1 DAY
     Route: 048

REACTIONS (5)
  - OVERDOSE [None]
  - PYREXIA [None]
  - GAMMA-GLUTAMYLTRANSFERASE INCREASED [None]
  - RENAL FAILURE ACUTE [None]
  - HAEMATURIA [None]
